FAERS Safety Report 11891501 (Version 2)
Quarter: 2016Q1

REPORT INFORMATION
  Report Type: Report from Study
  Country: PL (occurrence: PL)
  Receive Date: 20160106
  Receipt Date: 20160219
  Transmission Date: 20160526
  Serious: Yes (Hospitalization)
  Sender: FDA-Public Use
  Company Number: PL-ACTAVIS-2015-28932

PATIENT
  Age: 72 Year
  Sex: Male

DRUGS (3)
  1. AUGMENTIN [Concomitant]
     Active Substance: AMOXICILLIN\CLAVULANATE POTASSIUM
     Indication: CHRONIC OBSTRUCTIVE PULMONARY DISEASE
     Dosage: 2 G, DAILY
     Route: 048
     Dates: start: 20151015
  2. DOCETAXEL. [Suspect]
     Active Substance: DOCETAXEL
     Indication: NON-SMALL CELL LUNG CANCER
     Dosage: 144 MG (75 MG/M^2) (144 MG, DAY 1 OF A 21 DAY CYCLE)
     Route: 042
     Dates: start: 20150528, end: 20150925
  3. CUSTIRSEN [Suspect]
     Active Substance: CUSTIRSEN
     Indication: NON-SMALL CELL LUNG CANCER
     Dosage: 640 MG (640 MG; DAY 1, 8, 15, OF A 21 DAY CYCLE)
     Route: 042
     Dates: start: 20150520, end: 20151002

REACTIONS (1)
  - Pulmonary embolism [Recovered/Resolved]

NARRATIVE: CASE EVENT DATE: 20151015
